FAERS Safety Report 5841359-8 (Version None)
Quarter: 2008Q3

REPORT INFORMATION
  Report Type: 
  Country: None (occurrence: None)
  Receive Date: 20080812
  Receipt Date: 20080807
  Transmission Date: 20090109
  Serious: Yes (Other)
  Sender: FDA-Public Use
  Company Number: BR-ALLERGAN-0809790US

PATIENT
  Sex: Female
  Weight: 56 kg

DRUGS (1)
  1. BOTOX [Suspect]
     Indication: SKIN WRINKLING
     Dosage: 50 UNITS, SINGLE
     Route: 030
     Dates: start: 20080801, end: 20080801

REACTIONS (2)
  - CARDIAC ARREST [None]
  - DRUG INEFFECTIVE [None]
